FAERS Safety Report 4551979-9 (Version None)
Quarter: 2005Q1

REPORT INFORMATION
  Report Type: 
  Country: None (occurrence: None)
  Receive Date: 20050112
  Receipt Date: 20050103
  Transmission Date: 20050727
  Serious: Yes (Death, Hospitalization)
  Sender: FDA-Public Use
  Company Number: 9604

PATIENT
  Age: 64 Year
  Sex: Male

DRUGS (4)
  1. DAUNORUBICIN HCL [Suspect]
     Indication: ACUTE MYELOID LEUKAEMIA
     Dosage: 240 MG/M2 FREQ
     Dates: start: 20041120
  2. CYTARABINE [Suspect]
     Indication: ACUTE MYELOID LEUKAEMIA
     Dosage: 1260 MG
     Dates: start: 20041124
  3. LY335979 [Suspect]
     Indication: ACUTE MYELOID LEUKAEMIA
     Dosage: 550 MG
     Dates: start: 20041117
  4. NEUPOGEN [Suspect]
     Indication: ACUTE MYELOID LEUKAEMIA
     Dosage: 600 MG
     Dates: start: 20041129

REACTIONS (5)
  - FEBRILE NEUTROPENIA [None]
  - LOBAR PNEUMONIA [None]
  - LUNG CONSOLIDATION [None]
  - SEPTIC SHOCK [None]
  - THERAPY NON-RESPONDER [None]
